FAERS Safety Report 6088303-9 (Version None)
Quarter: 2009Q1

REPORT INFORMATION
  Report Type: 
  Country: None (occurrence: None)
  Receive Date: 20090219
  Receipt Date: 20090126
  Transmission Date: 20090719
  Serious: Yes (Other)
  Sender: FDA-Public Use
  Company Number: 184504ISR

PATIENT
  Age: 35 Year
  Sex: Female

DRUGS (5)
  1. DOXORUBICIN HCL [Suspect]
  2. VINCRISIINE [Suspect]
  3. PREDNISONE [Suspect]
  4. RITUXIMAB [Suspect]
  5. CYCLOPHOSPHAMIDE [Suspect]

REACTIONS (16)
  - ACTIVATED PARTIAL THROMBOPLASTIN TIME PROLONGED [None]
  - BIOPSY BONE MARROW ABNORMAL [None]
  - BLOOD BILIRUBIN INCREASED [None]
  - EPSTEIN-BARR VIRUS ASSOCIATED LYMPHOPROLIFERATIVE DISORDER [None]
  - HEPATOSPLENOMEGALY [None]
  - HISTIOCYTOSIS HAEMATOPHAGIC [None]
  - HYPERTRIGLYCERIDAEMIA [None]
  - HYPOCOAGULABLE STATE [None]
  - HYPOGAMMAGLOBULINAEMIA [None]
  - JAUNDICE [None]
  - LUNG CONSOLIDATION [None]
  - LYMPHADENOPATHY [None]
  - NEUTROPHIL PERCENTAGE INCREASED [None]
  - PANCYTOPENIA [None]
  - RENAL NEOPLASM [None]
  - SERUM FERRITIN INCREASED [None]
